FAERS Safety Report 5766077-6 (Version None)
Quarter: 2008Q2

REPORT INFORMATION
  Report Type: 
  Country: None (occurrence: None)
  Receive Date: 20080611
  Receipt Date: 20080530
  Transmission Date: 20081010
  Serious: Yes (Hospitalization)
  Sender: FDA-Public Use
  Company Number: FR-AVENTIS-200812030FR

PATIENT
  Age: 84 Year
  Sex: Male

DRUGS (8)
  1. AMAREL [Suspect]
     Route: 048
     Dates: end: 20080421
  2. DIANTALVIC [Suspect]
     Route: 048
     Dates: end: 20080421
  3. IRBESARTAN [Concomitant]
     Route: 048
     Dates: end: 20080421
  4. FUCIDINE CAP [Concomitant]
     Route: 048
     Dates: start: 20080411, end: 20080421
  5. LEXOMIL [Concomitant]
     Route: 048
     Dates: start: 20080417, end: 20080421
  6. LOXEN [Concomitant]
  7. CELIPROLOL [Concomitant]
  8. FENOFIBRATE [Concomitant]

REACTIONS (2)
  - DRUG INTERACTION [None]
  - HYPOGLYCAEMIA [None]
